FAERS Safety Report 17583497 (Version 2)
Quarter: 2024Q1

REPORT INFORMATION
  Report Type: Spontaneous
  Country: IT (occurrence: IT)
  Receive Date: 20200326
  Receipt Date: 20240102
  Transmission Date: 20240410
  Serious: No
  Sender: FDA-Public Use
  Company Number: IT-CELLTRION INC.-2020IT020871

PATIENT

DRUGS (1)
  1. RITUXIMAB [Suspect]
     Active Substance: RITUXIMAB
     Indication: Scleritis
     Dosage: 2 G/6 MONTHS

REACTIONS (1)
  - Drug ineffective for unapproved indication [Unknown]
